FAERS Safety Report 16666802 (Version 1)
Quarter: 2019Q3

REPORT INFORMATION
  Report Type: Spontaneous
  Country: PH (occurrence: PH)
  Receive Date: 20190805
  Receipt Date: 20190805
  Transmission Date: 20191004
  Serious: Yes (Death, Other)
  Sender: FDA-Public Use
  Company Number: PH-009507513-1908PHL000535

PATIENT
  Sex: Male

DRUGS (2)
  1. SIVEXTRO [Suspect]
     Active Substance: TEDIZOLID PHOSPHATE
     Indication: BACTERAEMIA
     Dosage: 200 MILLIGRAM, UNKNOWN
     Route: 042
  2. COLISTIN [Concomitant]
     Active Substance: COLISTIN
     Indication: BACTERAEMIA
     Dosage: UNKNOWN

REACTIONS (2)
  - Off label use [Unknown]
  - Death [Fatal]

NARRATIVE: CASE EVENT DATE: 2018
